FAERS Safety Report 25619546 (Version 2)
Quarter: 2025Q3

REPORT INFORMATION
  Report Type: Spontaneous
  Country: CN (occurrence: CN)
  Receive Date: 20250729
  Receipt Date: 20250818
  Transmission Date: 20251021
  Serious: Yes (Other)
  Sender: JAZZ
  Company Number: CN-JAZZ PHARMACEUTICALS-2025-CN-018448

PATIENT
  Age: 68 Year
  Sex: Male

DRUGS (2)
  1. ZIIHERA [Suspect]
     Active Substance: ZANIDATAMAB-HRII
     Indication: Bile duct cancer
  2. DIPHENHYDRAMINE HYDROCHLORIDE [Concomitant]
     Active Substance: DIPHENHYDRAMINE HYDROCHLORIDE
     Indication: Product used for unknown indication

REACTIONS (4)
  - Hyperpyrexia [Recovering/Resolving]
  - Chills [Unknown]
  - Product impurity [Unknown]
  - Medication error [Unknown]

NARRATIVE: CASE EVENT DATE: 20250701
